FAERS Safety Report 5553009-9 (Version None)
Quarter: 2007Q4

REPORT INFORMATION
  Report Type: 
  Country: None (occurrence: None)
  Receive Date: 20071211
  Receipt Date: 20071127
  Transmission Date: 20080405
  Serious: Yes (Death, Hospitalization)
  Sender: FDA-Public Use
  Company Number: B0498695A

PATIENT
  Age: 72 Year
  Sex: Male

DRUGS (1)
  1. AMOXICILLIN TRIHYDRATE [Suspect]

REACTIONS (3)
  - HEPATOTOXICITY [None]
  - LIVER INJURY [None]
  - MULTI-ORGAN FAILURE [None]
